FAERS Safety Report 23521802 (Version 1)
Quarter: 2024Q1

REPORT INFORMATION
  Report Type: 
  Country: None (occurrence: None)
  Receive Date: 20240214
  Receipt Date: 20240214
  Transmission Date: 20240410
  Serious: No
  Sender: FDA-Public Use
  Company Number: JP-CHUGAI-2023045283

PATIENT

DRUGS (10)
  1. RITUXAN [Suspect]
     Active Substance: RITUXIMAB
  2. ENSPRYNG [Suspect]
     Active Substance: SATRALIZUMAB-MWGE
     Dates: start: 20200921, end: 20200928
  3. ENSPRYNG [Suspect]
     Active Substance: SATRALIZUMAB-MWGE
     Dates: start: 20210415, end: 20220701
  4. ENSPRYNG [Suspect]
     Active Substance: SATRALIZUMAB-MWGE
     Dates: start: 20200928, end: 20200928
  5. ENSPRYNG [Suspect]
     Active Substance: SATRALIZUMAB-MWGE
     Dates: start: 20201005, end: 20220701
  6. CYCLOPHOSPHAMIDE [Suspect]
     Active Substance: CYCLOPHOSPHAMIDE
     Dosage: UNK
  7. MITOXANTRONE [Suspect]
     Active Substance: MITOXANTRONE HYDROCHLORIDE
     Dosage: UNK
  8. PREDONINE [Concomitant]
     Active Substance: PREDNISOLONE
     Dates: start: 20200921, end: 20210321
  9. PREDONINE [Concomitant]
     Active Substance: PREDNISOLONE
     Dosage: 9 MG/DAY
     Dates: start: 20211217, end: 20220213
  10. PREDONINE [Concomitant]
     Active Substance: PREDNISOLONE
     Dates: start: 20220214, end: 20220701

REACTIONS (3)
  - Breast cancer [None]
  - Subcutaneous abscess [None]
  - Off label use [None]

NARRATIVE: CASE EVENT DATE: 20210701
